FAERS Safety Report 7832193-8 (Version None)
Quarter: 2011Q4

REPORT INFORMATION
  Report Type: 
  Country: None (occurrence: None)
  Receive Date: 20111022
  Receipt Date: 20111013
  Transmission Date: 20120403
  Serious: Yes (Other)
  Sender: FDA-Public Use
  Company Number: US-BAYER-2011-099227

PATIENT
  Age: 89 Year
  Sex: Female
  Weight: 73 kg

DRUGS (2)
  1. PLAVIX [Suspect]
     Indication: CEREBROVASCULAR ACCIDENT
     Dosage: DAILY DOSE 75 MG
     Route: 048
  2. ASPIRIN [Suspect]
     Indication: CEREBROVASCULAR ACCIDENT
     Dosage: UNK, QD

REACTIONS (6)
  - BALANCE DISORDER [None]
  - LIVER ABSCESS [None]
  - TREMOR [None]
  - HYPOAESTHESIA [None]
  - FALL [None]
  - CARDIAC PACEMAKER INSERTION [None]
